FAERS Safety Report 14966226 (Version 3)
Quarter: 2018Q2

REPORT INFORMATION
  Report Type: Spontaneous
  Country: BE (occurrence: BE)
  Receive Date: 20180603
  Receipt Date: 20180622
  Transmission Date: 20180711
  Serious: Yes (Hospitalization)
  Sender: FDA-Public Use
  Company Number: BE-UCBSA-2018023403

PATIENT
  Sex: Male

DRUGS (2)
  1. XYZALL [Suspect]
     Active Substance: LEVOCETIRIZINE DIHYDROCHLORIDE
     Indication: OFF LABEL USE
     Dosage: 2.5 MG, ONCE DAILY (QD), 10 DROPS A DAY
     Route: 048
  2. XYZALL [Suspect]
     Active Substance: LEVOCETIRIZINE DIHYDROCHLORIDE
     Indication: SKIN DISORDER
     Dosage: 8MG DROPS AT ONCE
     Dates: start: 20180523, end: 20180523

REACTIONS (3)
  - Overdose [Unknown]
  - Amnesia [Unknown]
  - Off label use [Unknown]

NARRATIVE: CASE EVENT DATE: 20180523
